FAERS Safety Report 12658592 (Version 1)
Quarter: 2016Q3

REPORT INFORMATION
  Report Type: Spontaneous
  Country: None (occurrence: None)
  Receive Date: 20160816
  Receipt Date: 20160816
  Transmission Date: 20161109
  Serious: No
  Sender: FDA-Public Use
  Company Number: None

PATIENT
  Age: 56 Year
  Sex: Female
  Weight: 58.97 kg

DRUGS (6)
  1. ACTONEL [Suspect]
     Active Substance: RISEDRONATE SODIUM
     Indication: OSTEOPOROSIS
     Dosage: 1 TABLET (S) MONTH TAKEN BY MOUTH
     Route: 048
     Dates: start: 20160612, end: 20160710
  2. TYLENOL [Concomitant]
     Active Substance: ACETAMINOPHEN
  3. ACTONEL [Suspect]
     Active Substance: RISEDRONATE SODIUM
     Indication: BONE DENSITY INCREASED
     Dosage: 1 TABLET (S) MONTH TAKEN BY MOUTH
     Route: 048
     Dates: start: 20160612, end: 20160710
  4. CALTRATE 600 + D + MINERALS [Concomitant]
  5. NATURE MADE FISH OIL 1200MG, 360MG OMEGA NATURE MADE NUITRITIONAL PRODUCT [Concomitant]
     Active Substance: FISH OIL\OMEGA-3 FATTY ACIDS
  6. VITAMIN D3 [Concomitant]
     Active Substance: CHOLECALCIFEROL

REACTIONS (5)
  - Quality of life decreased [None]
  - Back pain [None]
  - Bone pain [None]
  - Arthralgia [None]
  - Immobile [None]

NARRATIVE: CASE EVENT DATE: 20160731
